FAERS Safety Report 19716425 (Version 4)
Quarter: 2022Q2

REPORT INFORMATION
  Report Type: Spontaneous
  Country: US (occurrence: US)
  Receive Date: 20210819
  Receipt Date: 20220418
  Transmission Date: 20220721
  Serious: No
  Sender: FDA-Public Use
  Company Number: US-UCBSA-2021039445

PATIENT
  Sex: Male

DRUGS (1)
  1. NEUPRO [Suspect]
     Active Substance: ROTIGOTINE
     Indication: Restless legs syndrome
     Dosage: 4 GRAM, ONCE DAILY (QD)
     Route: 062

REACTIONS (4)
  - Burning sensation [Unknown]
  - Pruritus [Unknown]
  - Device adhesion issue [Unknown]
  - Overdose [Unknown]
